FAERS Safety Report 4495701-3 (Version None)
Quarter: 2004Q4

REPORT INFORMATION
  Report Type: 
  Country: None (occurrence: None)
  Receive Date: 20041103
  Receipt Date: 20041018
  Transmission Date: 20050328
  Serious: Yes (Death)
  Sender: FDA-Public Use
  Company Number: 2004-BP-10338RO

PATIENT
  Age: 50 Year
  Sex: 0

DRUGS (3)
  1. ALPRAZOLAM [Suspect]
  2. BUPROPION HCL [Suspect]
  3. ACETAMINOPHEN W/PROPOXYPHENE (DOXYPHENE) [Suspect]

REACTIONS (2)
  - COMPLETED SUICIDE [None]
  - MULTIPLE DRUG OVERDOSE INTENTIONAL [None]
